FAERS Safety Report 13374065 (Version 1)
Quarter: 2017Q1

REPORT INFORMATION
  Report Type: Spontaneous
  Country: None (occurrence: US)
  Receive Date: 20170325
  Receipt Date: 20170325
  Transmission Date: 20170429
  Serious: Yes (Hospitalization)
  Sender: FDA-Public Use
  Company Number: None

PATIENT

DRUGS (1)
  1. RIZATRIPTAN 10MG (OOT) [Suspect]
     Active Substance: RIZATRIPTAN
     Indication: MIGRAINE
     Route: 048
     Dates: end: 20170321

REACTIONS (6)
  - Dyspnoea [None]
  - Supraventricular tachycardia [None]
  - Palpitations [None]
  - Chest pain [None]
  - Foetal heart rate increased [None]
  - Hypertension [None]

NARRATIVE: CASE EVENT DATE: 20170321
